FAERS Safety Report 9940988 (Version 2)
Quarter: 2014Q1

REPORT INFORMATION
  Report Type: Spontaneous
  Country: US (occurrence: US)
  Receive Date: 20140303
  Receipt Date: 20140303
  Transmission Date: 20141002
  Serious: Yes (Death, Other)
  Sender: FDA-Public Use
  Company Number: US-INCYTE CORPORATION-2014IN000184

PATIENT
  Age: 68 Year
  Sex: Male

DRUGS (13)
  1. JAKAFI [Suspect]
     Indication: MYELOFIBROSIS
     Dosage: 15 MG, BID
     Route: 048
     Dates: end: 20140123
  2. OXYCODONE/APAP                     /01601701/ [Concomitant]
  3. HYDROXYUREA [Concomitant]
  4. BUTORPHANOL [Concomitant]
  5. METFORMIN [Concomitant]
  6. PROAIR                             /00139502/ [Concomitant]
  7. LORAZEPAM [Concomitant]
  8. HYDROCODONE/APAP [Concomitant]
  9. PROMETHAZINE [Concomitant]
  10. SERTRALINE [Concomitant]
  11. KCL [Concomitant]
  12. SPIRIVA [Concomitant]
  13. GUAIFENESIN [Concomitant]

REACTIONS (7)
  - Acute respiratory failure [Fatal]
  - Renal failure [Fatal]
  - Hepatic failure [Fatal]
  - Acidosis [Fatal]
  - Disease progression [Fatal]
  - Platelet count decreased [Unknown]
  - Contusion [Unknown]
